FAERS Safety Report 9234185 (Version 1)
Quarter: 2013Q2

REPORT INFORMATION
  Report Type: Spontaneous
  Country: SE (occurrence: SE)
  Receive Date: 20130416
  Receipt Date: 20130416
  Transmission Date: 20140414
  Serious: Yes (Death, Other)
  Sender: FDA-Public Use
  Company Number: SE-ROCHE-1206744

PATIENT
  Age: 64 Year
  Sex: Female

DRUGS (3)
  1. ACTILYSE [Suspect]
     Indication: ANGIOPLASTY
     Route: 065
     Dates: start: 20101222
  2. DEXTROSE [Suspect]
     Indication: PERITONEAL DIALYSIS
     Route: 033
     Dates: start: 2010
  3. DEXTROSE [Suspect]
     Indication: HYPERTENSION

REACTIONS (2)
  - Haemorrhage [Fatal]
  - Peritonitis bacterial [Unknown]
